FAERS Safety Report 26134667 (Version 2)
Quarter: 2025Q4

REPORT INFORMATION
  Report Type: Spontaneous
  Country: EU (occurrence: EU)
  Receive Date: 20251209
  Receipt Date: 20251231
  Transmission Date: 20260117
  Serious: Yes (Life-Threatening, Other)
  Sender: CSL BEHRING
  Company Number: None

PATIENT
  Age: 68 Year
  Sex: Male
  Weight: 78 kg

DRUGS (1)
  1. PRIVIGEN [Suspect]
     Active Substance: HUMAN IMMUNOGLOBULIN G
     Indication: Hypogammaglobulinaemia
     Dosage: 10 G 0.2 - 0.4 G/KG BODY WEIGHT EVERY 3-4 WEEKS
     Route: 042
     Dates: start: 20251111, end: 20251111

REACTIONS (2)
  - Hypotensive crisis [Recovered/Resolved]
  - Chest pain [Recovered/Resolved]

NARRATIVE: CASE EVENT DATE: 20251111
